FAERS Safety Report 9913051 (Version 1)
Quarter: 2014Q1

REPORT INFORMATION
  Report Type: Spontaneous
  Country: GB (occurrence: None)
  Receive Date: 20140214
  Receipt Date: 20140214
  Transmission Date: 20141002
  Serious: No
  Sender: FDA-Public Use
  Company Number: B0965740A

PATIENT
  Age: 58 Year
  Sex: Female
  Weight: 82.37 kg

DRUGS (3)
  1. PAROXETINE HYDROCHLORIDE (FORMULATION UNKNOWN) (GENERIC) (PAROXETINE HYDROCHLORIDE) [Suspect]
     Indication: DEPRESSION
     Route: 048
     Dates: start: 20050101
  2. THYROXINE SODIUM [Concomitant]
  3. SIMVASTATIN [Concomitant]

REACTIONS (8)
  - Akathisia [None]
  - Anxiety [None]
  - Diarrhoea [None]
  - Nausea [None]
  - Weight decreased [None]
  - Insomnia [None]
  - Decreased appetite [None]
  - Withdrawal syndrome [None]
